FAERS Safety Report 23124071 (Version 1)
Quarter: 2023Q4

REPORT INFORMATION
  Report Type: Spontaneous
  Country: US (occurrence: US)
  Receive Date: 20231030
  Receipt Date: 20231030
  Transmission Date: 20240110
  Serious: Yes (Other)
  Sender: FDA-Public Use
  Company Number: US-BAYER-2023A151674

PATIENT
  Age: 28 Year
  Sex: Female

DRUGS (6)
  1. ASPIRIN [Suspect]
     Active Substance: ASPIRIN
     Indication: Gynaecological disorder prophylaxis
     Dosage: UNK
  2. ENOXAPARIN [Suspect]
     Active Substance: ENOXAPARIN
     Indication: Thrombosis prophylaxis
     Dosage: 40 MG, QD
     Route: 058
  3. NIFEDIPINE [Concomitant]
     Active Substance: NIFEDIPINE
     Dosage: UNK
  4. HYDROXYCHLOROQUINE [Concomitant]
     Active Substance: HYDROXYCHLOROQUINE
  5. AZATHIOPRINE [Concomitant]
     Active Substance: AZATHIOPRINE
  6. HUMAN IMMUNOGLOBULIN G [Concomitant]
     Active Substance: HUMAN IMMUNOGLOBULIN G

REACTIONS (21)
  - Acute kidney injury [None]
  - Antiphospholipid syndrome [None]
  - Premature delivery [None]
  - Caesarean section [None]
  - Acute respiratory failure [None]
  - Acute respiratory distress syndrome [None]
  - Leukopenia [None]
  - Febrile neutropenia [None]
  - Mitral valve incompetence [None]
  - Renal failure [None]
  - Thrombotic microangiopathy [None]
  - Labelled drug-drug interaction medication error [None]
  - Thrombocytopenia [None]
  - Condition aggravated [None]
  - Lupus endocarditis [None]
  - Postoperative wound infection [None]
  - Microangiopathic haemolytic anaemia [None]
  - Off label use [None]
  - Haematuria [None]
  - Pre-eclampsia [None]
  - Maternal exposure during pregnancy [None]
